FAERS Safety Report 18931492 (Version 1)
Quarter: 2021Q1

REPORT INFORMATION
  Report Type: Spontaneous
  Country: JP (occurrence: JP)
  Receive Date: 20210223
  Receipt Date: 20210223
  Transmission Date: 20210420
  Serious: Yes (Other)
  Sender: FDA-Public Use
  Company Number: NVSJ2020JP006415

PATIENT
  Age: 65 Year
  Sex: Male

DRUGS (1)
  1. LOCOL (FLUVASTATIN) [Suspect]
     Active Substance: FLUVASTATIN SODIUM
     Indication: PRODUCT USED FOR UNKNOWN INDICATION
     Dosage: UNK
     Route: 048
     Dates: start: 201310, end: 201901

REACTIONS (2)
  - Rhabdomyolysis [Unknown]
  - Polyneuropathy [Unknown]
